FAERS Safety Report 8786019 (Version 1)
Quarter: 2012Q4

REPORT INFORMATION
  Report Type: Spontaneous
  Country: IT (occurrence: None)
  Receive Date: 20120905
  Receipt Date: 20120905
  Transmission Date: 20130627
  Serious: Yes (Hospitalization)
  Sender: FDA-Public Use
  Company Number: FK201202531

PATIENT
  Age: 75 Year
  Sex: Female

DRUGS (3)
  1. OXALIPLATIN [Suspect]
     Dosage: 130 mg, As required, Intravenous (not otherwise specified)
     Dates: start: 20120725, end: 20120814
  2. KC L RETARD [Concomitant]
  3. CAPECITABINE (CAPECITABINE) [Concomitant]

REACTIONS (4)
  - Asthenia [None]
  - Hypertension [None]
  - Sensory disturbance [None]
  - Tongue disorder [None]
